FAERS Safety Report 18131698 (Version 3)
Quarter: 2020Q4

REPORT INFORMATION
  Report Type: Report from Study
  Country: JP (occurrence: JP)
  Receive Date: 20200810
  Receipt Date: 20201105
  Transmission Date: 20210113
  Serious: Yes (Hospitalization)
  Sender: FDA-Public Use
  Company Number: JP-BAXTER-2020BAX016102

PATIENT
  Age: 47 Year
  Sex: Female

DRUGS (12)
  1. ATEZOLIZUMAB. [Suspect]
     Active Substance: ATEZOLIZUMAB
     Dosage: GENETICAL RECOMBINATION, LAST DOSE PRIOR TO ANOREXIA GRADE 2
     Route: 042
     Dates: start: 20191029, end: 20191029
  2. PACLITAXEL. [Suspect]
     Active Substance: PACLITAXEL
     Dosage: LAST DOSE PRIOR TO SERIOUS DEPRESSION GRADE 3
     Route: 042
     Dates: start: 20200114, end: 20200114
  3. ATEZOLIZUMAB. [Suspect]
     Active Substance: ATEZOLIZUMAB
     Indication: TRIPLE NEGATIVE BREAST CANCER
     Dosage: GENETICAL RECOMBINATION
     Route: 042
     Dates: start: 20191015
  4. PACLITAXEL. [Suspect]
     Active Substance: PACLITAXEL
     Dosage: LAST DOSE PRIOR TO ANOREXIA GRADE 2
     Route: 042
     Dates: start: 20191029, end: 20191029
  5. ENDOXAN 1G [Suspect]
     Active Substance: CYCLOPHOSPHAMIDE
     Indication: TRIPLE NEGATIVE BREAST CANCER
     Route: 042
     Dates: start: 20200121
  6. EPIRUBICIN HYDROCHLORIDE. [Suspect]
     Active Substance: EPIRUBICIN HYDROCHLORIDE
     Indication: TRIPLE NEGATIVE BREAST CANCER
     Route: 042
     Dates: start: 20200121
  7. ATEZOLIZUMAB. [Suspect]
     Active Substance: ATEZOLIZUMAB
     Dosage: GENETICAL RECOMBINATION, LAST DOSE PRIOR TO SERIOUS DEPRESSION GRADE 3
     Route: 042
     Dates: start: 20200121, end: 20200121
  8. PEGFILGRASTIM [Concomitant]
     Active Substance: PEGFILGRASTIM
     Indication: PRODUCT USED FOR UNKNOWN INDICATION
     Route: 065
     Dates: start: 20200122, end: 20200122
  9. DOXIL [Suspect]
     Active Substance: DOXORUBICIN HYDROCHLORIDE
     Indication: PRODUCT USED FOR UNKNOWN INDICATION
     Route: 042
  10. ATEZOLIZUMAB. [Suspect]
     Active Substance: ATEZOLIZUMAB
     Dosage: GENETICAL RECOMBINATION, LAST DOSE PRIOR TO AE DEPRESSION
     Route: 042
     Dates: start: 20191112, end: 20191112
  11. PACLITAXEL. [Suspect]
     Active Substance: PACLITAXEL
     Indication: TRIPLE NEGATIVE BREAST CANCER
     Route: 042
     Dates: start: 20191015
  12. PACLITAXEL. [Suspect]
     Active Substance: PACLITAXEL
     Dosage: LAST DOSE PRIOR TO DEPRESSION
     Route: 042
     Dates: start: 20191112, end: 20191112

REACTIONS (2)
  - Depression [Recovering/Resolving]
  - Decreased appetite [Recovered/Resolved]

NARRATIVE: CASE EVENT DATE: 20191101
